FAERS Safety Report 18352273 (Version 1)
Quarter: 2020Q4

REPORT INFORMATION
  Report Type: Spontaneous
  Country: IT (occurrence: IT)
  Receive Date: 20201006
  Receipt Date: 20201006
  Transmission Date: 20210114
  Serious: Yes (Hospitalization)
  Sender: FDA-Public Use
  Company Number: IT-FRESENIUS KABI-FK202010351

PATIENT
  Age: 81 Year
  Sex: Male

DRUGS (3)
  1. METHYLPREDNISOLONE (MANUFACTURER UNKNOWN) [Suspect]
     Active Substance: METHYLPREDNISOLONE
     Indication: DRUG REACTION WITH EOSINOPHILIA AND SYSTEMIC SYMPTOMS
     Dosage: THEN TAPERING FOR OVER WEEKS
     Route: 065
  2. METHYLPREDNISOLONE (MANUFACTURER UNKNOWN) [Suspect]
     Active Substance: METHYLPREDNISOLONE
     Dosage: TAPERING
     Route: 065
  3. METHYLPREDNISOLONE. [Suspect]
     Active Substance: METHYLPREDNISOLONE
     Indication: DRUG REACTION WITH EOSINOPHILIA AND SYSTEMIC SYMPTOMS
     Dosage: UNKNOWN
     Route: 061

REACTIONS (7)
  - Cardiac failure congestive [Unknown]
  - Pneumonia pseudomonal [Unknown]
  - Acute pulmonary oedema [Unknown]
  - Staphylococcal infection [Unknown]
  - Atrial fibrillation [Unknown]
  - Condition aggravated [Recovered/Resolved]
  - Acarodermatitis [Recovered/Resolved]
